FAERS Safety Report 8620970-5 (Version None)
Quarter: 2012Q3

REPORT INFORMATION
  Report Type: 
  Country: None (occurrence: None)
  Receive Date: 20120824
  Receipt Date: 20120814
  Transmission Date: 20120928
  Serious: Yes (Hospitalization, Other)
  Sender: FDA-Public Use
  Company Number: CN-ELI_LILLY_AND_COMPANY-CN201205009467

PATIENT
  Age: 69 Year
  Sex: Female

DRUGS (3)
  1. CALCIUM [Concomitant]
  2. FORTEO [Suspect]
     Indication: OSTEOPOROSIS
     Dosage: 20 UG, QD
     Route: 058
     Dates: start: 20120520
  3. ALFACALCIDOL [Concomitant]

REACTIONS (2)
  - APPENDICITIS [None]
  - POLLAKIURIA [None]
